FAERS Safety Report 4669018-8 (Version None)
Quarter: 2005Q2

REPORT INFORMATION
  Report Type: 
  Country: None (occurrence: None)
  Receive Date: 20050523
  Receipt Date: 20050511
  Transmission Date: 20051028
  Serious: Yes (Other)
  Sender: FDA-Public Use
  Company Number: US-JNJFOC-20041004509

PATIENT
  Sex: Female
  Weight: 52.16 kg

DRUGS (1)
  1. TOPAMAX [Suspect]
     Indication: MIGRAINE PROPHYLAXIS
     Route: 049

REACTIONS (5)
  - ASTHENIA [None]
  - CAROTID ARTERY OCCLUSION [None]
  - DYSGEUSIA [None]
  - MUSCLE TWITCHING [None]
  - PARAESTHESIA [None]
